FAERS Safety Report 9868302 (Version 1)
Quarter: 2014Q1

REPORT INFORMATION
  Report Type: Spontaneous
  Country: CO (occurrence: CO)
  Receive Date: 20140204
  Receipt Date: 20140204
  Transmission Date: 20141002
  Serious: Yes (Other)
  Sender: FDA-Public Use
  Company Number: CO-UCBSA-111532

PATIENT
  Age: 52 Year
  Sex: Female

DRUGS (7)
  1. CIMZIA [Suspect]
     Indication: RHEUMATOID ARTHRITIS
     Dosage: 200 MG
     Route: 058
     Dates: start: 20130903, end: 20131002
  2. PREDNISOLONE [Concomitant]
     Dosage: 1 TABLET DAILY
  3. ESOMEPRAZOL [Concomitant]
     Dosage: 1 TABLET DAILY
  4. METHOTREXATE [Concomitant]
     Dosage: 4 TABLETS PER WEEK
  5. STOPEN [Concomitant]
     Dosage: 1 TABLET DAILY
  6. NAPROXEN [Concomitant]
     Dosage: 2 TABLETS DAILY
  7. LORATADINE [Concomitant]
     Dosage: 1 TABLET DAILY

REACTIONS (3)
  - Rash [Recovered/Resolved]
  - Hypersensitivity [Recovered/Resolved]
  - Pruritus [Recovered/Resolved]
